FAERS Safety Report 14106931 (Version 12)
Quarter: 2018Q3

REPORT INFORMATION
  Report Type: Spontaneous
  Country: US (occurrence: US)
  Receive Date: 20171018
  Receipt Date: 20180918
  Transmission Date: 20181010
  Serious: Yes (Hospitalization)
  Sender: FDA-Public Use
  Company Number: US-ACTELION-A-US2017-161074

PATIENT
  Age: 67 Year
  Sex: Female
  Weight: 95.24 kg

DRUGS (14)
  1. UPTRAVI [Suspect]
     Active Substance: SELEXIPAG
     Dosage: 1200 MCG, BID
     Route: 048
  2. UPTRAVI [Suspect]
     Active Substance: SELEXIPAG
     Dosage: 600 MCG, BID
     Route: 048
  3. UPTRAVI [Suspect]
     Active Substance: SELEXIPAG
     Dosage: 600 MCG IN AM, 800 MCG IN PM
     Route: 048
  4. DILTIAZEM. [Concomitant]
     Active Substance: DILTIAZEM
  5. UPTRAVI [Suspect]
     Active Substance: SELEXIPAG
     Indication: PULMONARY ARTERIAL HYPERTENSION
     Dosage: 1000 MCG, BID
     Route: 048
  6. UPTRAVI [Suspect]
     Active Substance: SELEXIPAG
     Dosage: 400 MCG, BID
     Route: 048
  7. UPTRAVI [Suspect]
     Active Substance: SELEXIPAG
     Dosage: 800 MCG, BID
     Route: 048
  8. UPTRAVI [Suspect]
     Active Substance: SELEXIPAG
     Dosage: 200 MCG, BID
     Route: 048
  9. UPTRAVI [Suspect]
     Active Substance: SELEXIPAG
     Dosage: UNK
     Route: 048
  10. ADCIRCA [Concomitant]
     Active Substance: TADALAFIL
  11. WARFARIN [Concomitant]
     Active Substance: WARFARIN
  12. AUGMENTIN [Suspect]
     Active Substance: AMOXICILLIN\CLAVULANATE POTASSIUM
     Indication: CYSTITIS
     Route: 065
  13. LETAIRIS [Suspect]
     Active Substance: AMBRISENTAN
     Indication: PRODUCT USED FOR UNKNOWN INDICATION
     Dosage: 5 MG, QD
     Route: 048
     Dates: start: 20151012
  14. OXYGEN. [Concomitant]
     Active Substance: OXYGEN

REACTIONS (38)
  - Asthenia [Not Recovered/Not Resolved]
  - Mood altered [Not Recovered/Not Resolved]
  - Nausea [Unknown]
  - Acute haemorrhagic conjunctivitis [Unknown]
  - Decreased appetite [Recovering/Resolving]
  - Eyelid infection [Unknown]
  - Tinnitus [Unknown]
  - Pain [Unknown]
  - Nasopharyngitis [Unknown]
  - Therapy non-responder [Unknown]
  - Anxiety [Unknown]
  - Crying [Not Recovered/Not Resolved]
  - Myalgia [Recovering/Resolving]
  - Mental impairment [Unknown]
  - Stent placement [Unknown]
  - Nasal congestion [Unknown]
  - Palpitations [Recovering/Resolving]
  - Cluster headache [Unknown]
  - Disturbance in attention [Recovering/Resolving]
  - Cystitis [Unknown]
  - Abdominal pain upper [Not Recovered/Not Resolved]
  - Influenza [Unknown]
  - Dyspnoea [Recovered/Resolved]
  - Migraine [Unknown]
  - Pain in extremity [Unknown]
  - Condition aggravated [Not Recovered/Not Resolved]
  - Headache [Unknown]
  - Cardiac flutter [Not Recovered/Not Resolved]
  - Eyelid disorder [Unknown]
  - Diarrhoea [Not Recovered/Not Resolved]
  - Ear discomfort [Not Recovered/Not Resolved]
  - Pneumonia [Unknown]
  - Ear infection [Not Recovered/Not Resolved]
  - Oxygen therapy [Unknown]
  - Malaise [Not Recovered/Not Resolved]
  - Fear [Unknown]
  - Eyelid ptosis [Unknown]
  - Weight loss poor [Unknown]

NARRATIVE: CASE EVENT DATE: 20171009
